FAERS Safety Report 4384769-0 (Version None)
Quarter: 2004Q2

REPORT INFORMATION
  Report Type: 
  Country: None (occurrence: None)
  Receive Date: 20040623
  Receipt Date: 20040623
  Transmission Date: 20050107
  Serious: Yes (Other)
  Sender: FDA-Public Use
  Company Number: None

PATIENT
  Age: 32 Year
  Sex: Female
  Weight: 54.4316 kg

DRUGS (1)
  1. DESOGEN [Suspect]
     Indication: CONTRACEPTION
     Dosage: 0.15 MG ORAL
     Route: 048
     Dates: start: 20030515, end: 20041215

REACTIONS (4)
  - DIARRHOEA [None]
  - DYSMENORRHOEA [None]
  - HAEMORRHOIDS [None]
  - WEIGHT DECREASED [None]
